FAERS Safety Report 11044153 (Version 1)
Quarter: 2015Q2

REPORT INFORMATION
  Report Type: Spontaneous
  Country: US (occurrence: US)
  Receive Date: 20150417
  Receipt Date: 20150417
  Transmission Date: 20150821
  Serious: No
  Sender: FDA-Public Use
  Company Number: US-PFIZER INC-2015129207

PATIENT
  Age: 69 Year
  Sex: Female
  Weight: 75 kg

DRUGS (8)
  1. FENTANYL TRANSDERMAL SYSTEM [Concomitant]
     Active Substance: FENTANYL
     Dosage: 25 MG, ONCE EVERY THREE DAYS
     Route: 062
  2. SAVELLA [Concomitant]
     Active Substance: MILNACIPRAN HYDROCHLORIDE
     Indication: BACK DISORDER
  3. CELEBREX [Suspect]
     Active Substance: CELECOXIB
     Indication: ARTHRITIS
  4. CELEBREX [Suspect]
     Active Substance: CELECOXIB
     Indication: FIBROMYALGIA
  5. CELEBREX [Suspect]
     Active Substance: CELECOXIB
     Indication: SCOLIOSIS
     Dosage: 100 MG, 2X/DAY
     Route: 048
     Dates: start: 2013
  6. CELEBREX [Suspect]
     Active Substance: CELECOXIB
     Indication: SPINAL COLUMN STENOSIS
  7. CELEBREX [Suspect]
     Active Substance: CELECOXIB
     Indication: OSTEOARTHRITIS
  8. NORVASC [Suspect]
     Active Substance: AMLODIPINE BESYLATE
     Indication: BLOOD PRESSURE

REACTIONS (2)
  - Peripheral swelling [Not Recovered/Not Resolved]
  - Blood pressure increased [Not Recovered/Not Resolved]
